FAERS Safety Report 8021513-X (Version None)
Quarter: 2011Q4

REPORT INFORMATION
  Report Type: 
  Country: None (occurrence: None)
  Receive Date: 20111230
  Receipt Date: 20111213
  Transmission Date: 20120403
  Serious: Yes (Hospitalization)
  Sender: FDA-Public Use
  Company Number: JPI-P-018213

PATIENT
  Age: 38 Year
  Sex: Male
  Weight: 114.3065 kg

DRUGS (9)
  1. LAMOTRIGINE [Concomitant]
  2. GABAPENTIN [Concomitant]
  3. XYREM [Suspect]
     Indication: NARCOLEPSY
     Dosage: (UNKNOWN), ORAL, 12.5 GM (6.25 GM, 2 IN 1 D), ORAL
     Route: 048
     Dates: end: 20111018
  4. XYREM [Suspect]
     Indication: INSOMNIA
     Dosage: (UNKNOWN), ORAL, 12.5 GM (6.25 GM, 2 IN 1 D), ORAL
     Route: 048
     Dates: end: 20111018
  5. XYREM [Suspect]
     Indication: NARCOLEPSY
     Dosage: (UNKNOWN), ORAL, 12.5 GM (6.25 GM, 2 IN 1 D), ORAL
     Route: 048
     Dates: start: 20100513
  6. XYREM [Suspect]
     Indication: INSOMNIA
     Dosage: (UNKNOWN), ORAL, 12.5 GM (6.25 GM, 2 IN 1 D), ORAL
     Route: 048
     Dates: start: 20100513
  7. AMLODIPINE AND BESYLATE AND BENAZEPRIL HYDROCHLORIDE [Concomitant]
  8. DULOXETIME HYDROCHLORIDE [Concomitant]
  9. ALPRAZOLAM [Concomitant]

REACTIONS (2)
  - FALL [None]
  - CONVULSION [None]
